FAERS Safety Report 21284914 (Version 3)
Quarter: 2023Q2

REPORT INFORMATION
  Report Type: Spontaneous
  Country: US (occurrence: US)
  Receive Date: 20220902
  Receipt Date: 20230510
  Transmission Date: 20230721
  Serious: No
  Sender: FDA-Public Use
  Company Number: US-BRISTOL-MYERS SQUIBB COMPANY-2022-097745

PATIENT
  Age: 60 Year
  Sex: Female

DRUGS (2)
  1. SPRYCEL [Suspect]
     Active Substance: DASATINIB
     Indication: Myeloid leukaemia
     Dosage: FREQ: DAILY
     Route: 048
     Dates: start: 20220815
  2. SPRYCEL [Suspect]
     Active Substance: DASATINIB
     Indication: Chronic myeloid leukaemia
     Dates: start: 202303

REACTIONS (4)
  - Headache [Unknown]
  - Rash [Unknown]
  - Pain [Unknown]
  - White blood cell count decreased [Unknown]
